FAERS Safety Report 7954112-6 (Version None)
Quarter: 2011Q4

REPORT INFORMATION
  Report Type: 
  Country: None (occurrence: None)
  Receive Date: 20111202
  Receipt Date: 20111128
  Transmission Date: 20120403
  Serious: Yes (Hospitalization, Other)
  Sender: FDA-Public Use
  Company Number: US-AMGEN-USASP2011054625

PATIENT
  Age: 67 Year
  Sex: Female

DRUGS (2)
  1. TREXALL [Concomitant]
     Dosage: 2 MG, QWK
     Dates: start: 20110801
  2. ENBREL [Suspect]
     Indication: PSORIATIC ARTHROPATHY
     Dosage: 50 MG, QWK
     Dates: start: 20080101

REACTIONS (3)
  - BILE DUCT OBSTRUCTION [None]
  - SPINAL COLUMN STENOSIS [None]
  - ABDOMINAL DISCOMFORT [None]
